FAERS Safety Report 4817139-9 (Version None)
Quarter: 2005Q4

REPORT INFORMATION
  Report Type: 
  Country: None (occurrence: None)
  Receive Date: 20051101
  Receipt Date: 20051004
  Transmission Date: 20060501
  Serious: Yes (Hospitalization)
  Sender: FDA-Public Use
  Company Number: JP-ROCHE-420229

PATIENT
  Age: 76 Year
  Sex: Male

DRUGS (10)
  1. ROCEPHIN [Suspect]
     Indication: PYREXIA
     Route: 042
     Dates: start: 20050818, end: 20050818
  2. CRAVIT [Suspect]
     Indication: PYREXIA
     Route: 048
     Dates: start: 20050816, end: 20050817
  3. CALONAL [Suspect]
     Indication: PYREXIA
     Route: 048
     Dates: start: 20050816, end: 20050817
  4. DASEN [Suspect]
     Indication: PYREXIA
     Route: 048
     Dates: start: 20050816, end: 20050817
  5. OBELON [Suspect]
     Indication: PYREXIA
     Route: 030
     Dates: start: 20050817, end: 20050817
  6. BRUFEN [Suspect]
     Indication: PYREXIA
     Route: 048
     Dates: start: 20050818, end: 20050818
  7. MINOCYCLINE HCL [Suspect]
     Indication: PYREXIA
     Dosage: ORAL CAPSULE - 19AUG2005 TO 20AUG2005
     Route: 048
     Dates: start: 20050819, end: 20050820
  8. MINOCYCLINE HCL [Suspect]
     Route: 042
     Dates: start: 20050821, end: 20050824
  9. VOLTAREN [Suspect]
     Indication: PYREXIA
     Route: 054
     Dates: start: 20050821, end: 20050823
  10. AMLODIPINE BESYLATE [Concomitant]
     Route: 048
     Dates: start: 20001220

REACTIONS (8)
  - ANOREXIA [None]
  - GENERALISED OEDEMA [None]
  - JAUNDICE [None]
  - LIVER DISORDER [None]
  - NAUSEA [None]
  - OEDEMA [None]
  - RASH [None]
  - VOMITING [None]
